FAERS Safety Report 9033015 (Version 2)
Quarter: 2013Q3

REPORT INFORMATION
  Report Type: Spontaneous
  Country: IE (occurrence: IE)
  Receive Date: 20130128
  Receipt Date: 20130705
  Transmission Date: 20140515
  Serious: Yes (Life-Threatening, Hospitalization, Other)
  Sender: FDA-Public Use
  Company Number: IE-JNJFOC-20121014741

PATIENT
  Sex: Female

DRUGS (2)
  1. XEPLION [Suspect]
     Indication: PSYCHOTIC DISORDER
     Route: 030
     Dates: start: 20120916, end: 20121010
  2. XEPLION [Suspect]
     Indication: SCHIZOPHRENIA
     Route: 030
     Dates: start: 20120916, end: 20121010

REACTIONS (5)
  - Cerebrovascular accident [Recovered/Resolved]
  - Hemiparesis [Unknown]
  - Aphasia [Unknown]
  - Mental disorder [Unknown]
  - Drug dose omission [Unknown]
